FAERS Safety Report 6850786-1 (Version None)
Quarter: 2010Q3

REPORT INFORMATION
  Report Type: 
  Country: None (occurrence: None)
  Receive Date: 20100716
  Receipt Date: 20071023
  Transmission Date: 20110219
  Serious: No
  Sender: FDA-Public Use
  Company Number: US-PFIZER INC-2007090429

PATIENT
  Sex: Female
  Weight: 86.363 kg

DRUGS (4)
  1. CHANTIX [Suspect]
     Indication: SMOKING CESSATION THERAPY
     Dates: start: 20070101
  2. TOPAMAX [Concomitant]
     Indication: MIGRAINE
  3. AMBIEN [Concomitant]
     Indication: SLEEP APNOEA SYNDROME
  4. ALL OTHER THERAPEUTIC PRODUCTS [Concomitant]
     Indication: MIGRAINE

REACTIONS (5)
  - AGITATION [None]
  - DEHYDRATION [None]
  - DRUG DEPENDENCE [None]
  - NERVOUSNESS [None]
  - TACHYPHRENIA [None]
